FAERS Safety Report 21093892 (Version 1)
Quarter: 2022Q3

REPORT INFORMATION
  Report Type: Report from Study
  Country: GB (occurrence: GB)
  Receive Date: 20220718
  Receipt Date: 20220718
  Transmission Date: 20221026
  Serious: Yes (Hospitalization, Other)
  Sender: FDA-Public Use
  Company Number: GB-Zogenix International Limited, A wholly owned subsidiary of Zogenix, Inc.-2022ZX000817

PATIENT
  Age: 6 Year
  Sex: Female

DRUGS (14)
  1. FENFLURAMINE [Suspect]
     Active Substance: FENFLURAMINE
     Indication: Severe myoclonic epilepsy of infancy
     Dosage: FENFLURAMINE WAS ON HOLD AS THE PATIENT HAD DEVELOPED AN ACUTE LIVER INJURY
     Route: 048
  2. FENFLURAMINE [Suspect]
     Active Substance: FENFLURAMINE
     Dosage: RECOMMENCING FENFLURAMINE
     Route: 048
  3. VALPROATE SODIUM [Concomitant]
     Active Substance: VALPROATE SODIUM
     Indication: Product used for unknown indication
     Route: 065
  4. NAC [Concomitant]
     Indication: Product used for unknown indication
     Route: 065
  5. MIDAZOLAM [Concomitant]
     Active Substance: MIDAZOLAM
     Indication: Product used for unknown indication
     Route: 065
     Dates: end: 20220705
  6. CLOBAZAM [Concomitant]
     Active Substance: CLOBAZAM
     Indication: Product used for unknown indication
     Route: 065
  7. STIRIPENTOL [Concomitant]
     Active Substance: STIRIPENTOL
     Indication: Product used for unknown indication
     Route: 065
  8. AMIKACIN [Concomitant]
     Active Substance: AMIKACIN
     Indication: Product used for unknown indication
     Route: 065
  9. CEFOTAXIME [Concomitant]
     Active Substance: CEFOTAXIME SODIUM
     Indication: Product used for unknown indication
     Route: 065
  10. PIPERACILLIN AND TAZOBACTAM [Concomitant]
     Active Substance: PIPERACILLIN SODIUM\TAZOBACTAM SODIUM
     Indication: Product used for unknown indication
     Route: 065
  11. ACYCLOVIR [Concomitant]
     Active Substance: ACYCLOVIR
     Indication: Product used for unknown indication
     Route: 065
  12. CHLORAL HYDRATE [Concomitant]
     Active Substance: CHLORAL HYDRATE
     Indication: Product used for unknown indication
     Route: 065
  13. STIRIPENTOL [Concomitant]
     Active Substance: STIRIPENTOL
     Indication: Product used for unknown indication
  14. CLOBAZAM [Concomitant]
     Active Substance: CLOBAZAM
     Indication: Product used for unknown indication

REACTIONS (13)
  - Liver injury [Recovering/Resolving]
  - Encephalitis [Unknown]
  - Status epilepticus [Unknown]
  - Hypoxia [Unknown]
  - Ascites [Unknown]
  - Biliary obstruction [Unknown]
  - Adenovirus infection [Unknown]
  - Rhinovirus infection [Unknown]
  - COVID-19 [Unknown]
  - Human herpesvirus 6 infection [Unknown]
  - Oedema [Unknown]
  - Metabolic alkalosis [Unknown]
  - Partial seizures [Unknown]
